FAERS Safety Report 9887622 (Version 1)
Quarter: 2014Q1

REPORT INFORMATION
  Report Type: Spontaneous
  Country: DE (occurrence: DE)
  Receive Date: 20140211
  Receipt Date: 20140211
  Transmission Date: 20141002
  Serious: Yes (Life-Threatening)
  Sender: FDA-Public Use
  Company Number: DE-MYLANLABS-2014S1002008

PATIENT
  Age: 81 Year
  Sex: Male

DRUGS (12)
  1. METFORMIN [Suspect]
     Indication: TYPE 2 DIABETES MELLITUS
     Dosage: DAILY DOSE: 2000 MG MILLIGRAM(S) EVERY DAY
     Route: 048
     Dates: end: 20140120
  2. RAMIPRIL [Suspect]
     Indication: HYPERTENSION
     Route: 048
     Dates: end: 20140120
  3. XELEVIA [Suspect]
     Indication: TYPE 2 DIABETES MELLITUS
     Route: 048
     Dates: end: 20140120
  4. TOREM /01036501/ [Suspect]
     Indication: HYPERTENSION
     Route: 048
     Dates: end: 20140120
  5. HCT [Concomitant]
     Indication: HYPERTENSION
     Dates: end: 20140120
  6. FOLSAN [Concomitant]
     Indication: FOLATE DEFICIENCY
  7. METOPROLOL [Concomitant]
     Indication: TACHYCARDIA
     Dosage: DAILY DOSE: 47.5 MG MILLIGRAM(S) EVERY DAY
  8. KALINOR [Concomitant]
     Indication: HYPOKALAEMIA
     Dosage: 1 SACHET 3 TIMES A WEEK
     Dates: end: 20140120
  9. SIMVASTATIN [Concomitant]
     Indication: HYPERCHOLESTEROLAEMIA
  10. PROSTAGUTT FORTE [Concomitant]
     Indication: BENIGN PROSTATIC HYPERPLASIA
     Dates: end: 20140120
  11. ASS [Concomitant]
     Indication: CORONARY ARTERY DISEASE
  12. NOVALGIN [Concomitant]
     Indication: PAIN

REACTIONS (3)
  - Lactic acidosis [Recovered/Resolved]
  - Hypoglycaemia [Recovered/Resolved]
  - Renal failure acute [Not Recovered/Not Resolved]
